FAERS Safety Report 6273746-0 (Version None)
Quarter: 2009Q3

REPORT INFORMATION
  Report Type: 
  Country: None (occurrence: None)
  Receive Date: 20090720
  Receipt Date: 20090709
  Transmission Date: 20100115
  Serious: Yes (Other)
  Sender: FDA-Public Use
  Company Number: A0789408A

PATIENT
  Age: 79 Year
  Sex: Female

DRUGS (5)
  1. ADVAIR HFA [Suspect]
     Indication: ASTHMA
     Dosage: 1PUFF TWICE PER DAY
     Route: 055
     Dates: start: 20070515, end: 20070601
  2. SYNTHROID [Concomitant]
  3. ALBUTEROL [Concomitant]
  4. PROAIR HFA [Concomitant]
  5. COMBIVENT [Concomitant]

REACTIONS (3)
  - APHONIA [None]
  - ASTHMA [None]
  - DYSPHONIA [None]
